FAERS Safety Report 8168111-5 (Version None)
Quarter: 2012Q1

REPORT INFORMATION
  Report Type: 
  Country: None (occurrence: None)
  Receive Date: 20120227
  Receipt Date: 20111202
  Transmission Date: 20120608
  Serious: Yes (Death, Hospitalization)
  Sender: FDA-Public Use
  Company Number: GB-ROCHE-GNE324634

PATIENT
  Age: 84 Year
  Sex: Male

DRUGS (12)
  1. ASPIRIN [Concomitant]
  2. FUROSEMIDE [Concomitant]
  3. GOSERELIN [Concomitant]
  4. BISOPROLOL FUMARATE [Concomitant]
  5. BICALUTAMIDE [Concomitant]
  6. ACETAMINOPHEN [Concomitant]
  7. SALMETEROL [Concomitant]
  8. LUCENTIS [Suspect]
     Indication: AGE-RELATED MACULAR DEGENERATION
     Route: 050
     Dates: start: 20101015
  9. OMEPRAZOLE [Concomitant]
  10. LUCENTIS [Suspect]
     Route: 050
     Dates: start: 20110516
  11. ALENDRONIC ACID [Concomitant]
  12. RAMIPRIL [Concomitant]

REACTIONS (4)
  - CARDIAC FAILURE [None]
  - PROSTATE CANCER METASTATIC [None]
  - BRONCHOPNEUMONIA [None]
  - RENAL FAILURE [None]
